FAERS Safety Report 6207301-5 (Version None)
Quarter: 2009Q2

REPORT INFORMATION
  Report Type: 
  Country: None (occurrence: None)
  Receive Date: 20090527
  Receipt Date: 20090527
  Transmission Date: 20091009
  Serious: No
  Sender: FDA-Public Use
  Company Number: None

PATIENT
  Sex: Female
  Weight: 58.9676 kg

DRUGS (1)
  1. TAXOTERE [Suspect]
     Indication: BREAST CANCER
     Dates: start: 20080206, end: 20080206

REACTIONS (4)
  - CANDIDIASIS [None]
  - ONYCHOMADESIS [None]
  - SKIN EXFOLIATION [None]
  - STOMATITIS [None]
